FAERS Safety Report 4385835-6 (Version None)
Quarter: 2004Q2

REPORT INFORMATION
  Report Type: 
  Country: None (occurrence: None)
  Receive Date: 20040622
  Receipt Date: 20040616
  Transmission Date: 20050107
  Serious: Yes (Hospitalization)
  Sender: FDA-Public Use
  Company Number: MK200406-0136-1

PATIENT

DRUGS (1)
  1. ANAFRANIL [Suspect]
     Dosage: 250MG, DAILY

REACTIONS (4)
  - HYPONATRAEMIA [None]
  - NAUSEA [None]
  - POLYDIPSIA [None]
  - WATER INTOXICATION [None]
